FAERS Safety Report 15858676 (Version 11)
Quarter: 2020Q3

REPORT INFORMATION
  Report Type: Spontaneous
  Country: US (occurrence: US)
  Receive Date: 20190123
  Receipt Date: 20200729
  Transmission Date: 20201102
  Serious: Yes (Other)
  Sender: FDA-Public Use
  Company Number: US-PFIZER INC-2019026906

PATIENT
  Age: 18 Year
  Sex: Female
  Weight: 77.56 kg

DRUGS (2)
  1. DEPO?PROVERA [Suspect]
     Active Substance: MEDROXYPROGESTERONE ACETATE
     Indication: MENSTRUATION IRREGULAR
  2. DEPO?PROVERA [Suspect]
     Active Substance: MEDROXYPROGESTERONE ACETATE
     Indication: CONTRACEPTION
     Dosage: UNK
     Route: 030

REACTIONS (9)
  - Drug ineffective [Unknown]
  - Breast tenderness [Unknown]
  - Mental disorder [Unknown]
  - Abdominal pain [Recovering/Resolving]
  - Bacterial vaginosis [Unknown]
  - Amenorrhoea [Unknown]
  - Maternal exposure during pregnancy [Unknown]
  - Arthralgia [Unknown]
  - Muscle spasms [Unknown]
